FAERS Safety Report 17232763 (Version 6)
Quarter: 2020Q3

REPORT INFORMATION
  Report Type: Spontaneous
  Country: US (occurrence: US)
  Receive Date: 20200103
  Receipt Date: 20200824
  Transmission Date: 20201102
  Serious: Yes (Hospitalization, Other)
  Sender: FDA-Public Use
  Company Number: US-ACTELION-A-NJ2020-200078

PATIENT
  Age: 63 Year
  Sex: Female
  Weight: 111.57 kg

DRUGS (5)
  1. UPTRAVI [Concomitant]
     Active Substance: SELEXIPAG
  2. TYVASO [Concomitant]
     Active Substance: TREPROSTINIL
  3. OXYGEN. [Concomitant]
     Active Substance: OXYGEN
  4. REVATIO [Concomitant]
     Active Substance: SILDENAFIL CITRATE
  5. OPSUMIT [Suspect]
     Active Substance: MACITENTAN
     Indication: PULMONARY ARTERIAL HYPERTENSION
     Dosage: 10 MG, QD
     Route: 048

REACTIONS (18)
  - Chest pain [Unknown]
  - Hypotension [Recovered/Resolved]
  - Cardiac ablation [Unknown]
  - Diarrhoea [Unknown]
  - Rhinorrhoea [Unknown]
  - Contusion [Unknown]
  - Hospitalisation [Unknown]
  - Pulmonary oedema [Unknown]
  - Cardiac disorder [Unknown]
  - Nasopharyngitis [Unknown]
  - Cardiac pacemaker insertion [Unknown]
  - Unevaluable event [Unknown]
  - Upper-airway cough syndrome [Unknown]
  - Oxygen consumption increased [Unknown]
  - Face injury [Unknown]
  - Eye contusion [Unknown]
  - Diaphragmatic paralysis [Unknown]
  - Fall [Recovered/Resolved]

NARRATIVE: CASE EVENT DATE: 20191218
